FAERS Safety Report 17730032 (Version 4)
Quarter: 2020Q4

REPORT INFORMATION
  Report Type: Report from Study
  Country: None (occurrence: US)
  Receive Date: 20200430
  Receipt Date: 20201111
  Transmission Date: 20210113
  Serious: Yes (Other)
  Sender: FDA-Public Use
  Company Number: US-BIOVITRUM-2020US0596

PATIENT
  Age: 69 Year
  Sex: Male

DRUGS (12)
  1. IBUPROFEN. [Concomitant]
     Active Substance: IBUPROFEN
  2. TRAMADOL-ACETAMINOPHEN [Concomitant]
     Active Substance: ACETAMINOPHEN\TRAMADOL
  3. ASPIRIN. [Concomitant]
     Active Substance: ASPIRIN
  4. KINERET [Suspect]
     Active Substance: ANAKINRA
     Indication: PERICARDITIS
  5. METOPROLOL SUCCINATE. [Concomitant]
     Active Substance: METOPROLOL SUCCINATE
  6. ROSUVASTATIN. [Concomitant]
     Active Substance: ROSUVASTATIN
  7. COLCHICINE. [Concomitant]
     Active Substance: COLCHICINE
  8. OLMESARTAN [Concomitant]
     Active Substance: OLMESARTAN
  9. TORSEMIDE. [Concomitant]
     Active Substance: TORSEMIDE
  10. KINERET [Suspect]
     Active Substance: ANAKINRA
     Indication: RHEUMATOID ARTHRITIS
     Route: 058
     Dates: start: 20200118
  11. DEXILANT [Concomitant]
     Active Substance: DEXLANSOPRAZOLE
  12. OXYBUTYNIN CHLORIDE ER [Concomitant]
     Active Substance: OXYBUTYNIN CHLORIDE

REACTIONS (12)
  - Condition aggravated [Unknown]
  - Chest pain [Unknown]
  - Diarrhoea [Unknown]
  - Hyperkeratosis [Unknown]
  - Nasopharyngitis [Unknown]
  - Injection site urticaria [Unknown]
  - Vomiting [Unknown]
  - Musculoskeletal stiffness [Unknown]
  - Injection site pruritus [Unknown]
  - Injection site haemorrhage [Unknown]
  - Pericarditis [Unknown]
  - Off label use [Unknown]

NARRATIVE: CASE EVENT DATE: 20200118
